FAERS Safety Report 12628207 (Version 1)
Quarter: 2016Q3

REPORT INFORMATION
  Report Type: Spontaneous
  Country: US (occurrence: US)
  Receive Date: 20160808
  Receipt Date: 20160808
  Transmission Date: 20161109
  Serious: No
  Sender: FDA-Public Use
  Company Number: US-ASTRAZENECA-2016SE57687

PATIENT
  Sex: Female
  Weight: 76.7 kg

DRUGS (27)
  1. FLONASE [Concomitant]
     Active Substance: FLUTICASONE PROPIONATE
     Dosage: TWO SPRAY IN EACH NOSTRIL TWICE DAILY
  2. LORAZEPAM. [Concomitant]
     Active Substance: LORAZEPAM
     Indication: ANXIETY
  3. DITROPAN-XL [Concomitant]
     Route: 048
  4. ZANTAC [Concomitant]
     Active Substance: RANITIDINE HYDROCHLORIDE
     Route: 048
  5. ZYLOPRIM [Concomitant]
     Active Substance: ALLOPURINOL
     Route: 048
  6. ZOFRAN-ODT [Concomitant]
     Indication: NAUSEA
     Route: 048
  7. SINGULAIR [Concomitant]
     Active Substance: MONTELUKAST SODIUM
     Route: 048
  8. NEURONTIN [Concomitant]
     Active Substance: GABAPENTIN
     Route: 048
  9. PROVENTIL HFA [Concomitant]
     Active Substance: ALBUTEROL SULFATE
     Indication: DYSPNOEA
     Dosage: 6.7G UNKNOWN
  10. MOBIC [Concomitant]
     Active Substance: MELOXICAM
     Indication: CHEST PAIN
     Route: 048
  11. GI COCKTAIL [Concomitant]
     Route: 048
  12. NS [Concomitant]
     Active Substance: SODIUM CHLORIDE
     Route: 042
  13. ZOFRAN [Concomitant]
     Active Substance: ONDANSETRON HYDROCHLORIDE
     Route: 042
  14. ELAVIL [Suspect]
     Active Substance: AMITRIPTYLINE HYDROCHLORIDE
     Route: 048
  15. NORCO [Concomitant]
     Active Substance: ACETAMINOPHEN\HYDROCODONE BITARTRATE
     Indication: PAIN
     Dosage: TAKE 1-2 TABLETS BY ,OUTH EVERY FOUR HOURS AS NEEDED
     Route: 048
  16. ATIVAN [Concomitant]
     Active Substance: LORAZEPAM
     Indication: ANXIETY
     Route: 048
  17. PROVENTIL HFA [Concomitant]
     Active Substance: ALBUTEROL SULFATE
     Indication: WHEEZING
     Dosage: 6.7G UNKNOWN
  18. INDERAL LA [Concomitant]
     Active Substance: PROPRANOLOL HYDROCHLORIDE
     Route: 048
  19. REQUIP [Concomitant]
     Active Substance: ROPINIROLE HYDROCHLORIDE
     Route: 048
  20. MORPHINE [Concomitant]
     Active Substance: MORPHINE
     Route: 042
  21. PROTONIX [Suspect]
     Active Substance: PANTOPRAZOLE SODIUM
     Dosage: 40.0MG UNKNOWN
     Route: 042
  22. CHANTIX [Suspect]
     Active Substance: VARENICLINE TARTRATE
     Route: 065
  23. LIORESAL [Concomitant]
     Active Substance: BACLOFEN
     Route: 048
  24. LOFIBRA [Concomitant]
     Active Substance: FENOFIBRATE
     Route: 048
  25. OMEPRAZOLE. [Suspect]
     Active Substance: OMEPRAZOLE
     Route: 048
  26. ESTRACE [Concomitant]
     Active Substance: ESTRADIOL
     Route: 048
  27. DUONEB [Concomitant]
     Active Substance: ALBUTEROL SULFATE\IPRATROPIUM BROMIDE
     Indication: DYSPNOEA
     Dosage: USE ONE VIAL NEBULIZER FOUR TIES DAILY AS NEEDED

REACTIONS (4)
  - Chest pain [Not Recovered/Not Resolved]
  - Gastrooesophageal reflux disease [Not Recovered/Not Resolved]
  - Hypercholesterolaemia [Unknown]
  - Skin lesion [Not Recovered/Not Resolved]
